FAERS Safety Report 12709551 (Version 5)
Quarter: 2016Q4

REPORT INFORMATION
  Report Type: Spontaneous
  Country: US (occurrence: US)
  Receive Date: 20160902
  Receipt Date: 20161123
  Transmission Date: 20170207
  Serious: No
  Sender: FDA-Public Use
  Company Number: US-BAYER-2016-166900

PATIENT
  Age: 73 Year
  Sex: Female

DRUGS (2)
  1. BETACONNECT [Suspect]
     Active Substance: DEVICE
     Indication: DEVICE THERAPY
     Dosage: UNK
  2. BETASERON [Suspect]
     Active Substance: INTERFERON BETA-1B
     Indication: MULTIPLE SCLEROSIS
     Dosage: 0.3 MG, QOD
     Route: 058
     Dates: start: 20150526

REACTIONS (6)
  - Device difficult to use [None]
  - Patient dissatisfaction with treatment [None]
  - Injection site mass [None]
  - Injection site rash [None]
  - Wrong technique in product usage process [None]
  - Incorrect dose administered by device [None]
